FAERS Safety Report 17138908 (Version 1)
Quarter: 2019Q4

REPORT INFORMATION
  Report Type: Spontaneous
  Country: US (occurrence: US)
  Receive Date: 20191210
  Receipt Date: 20191210
  Transmission Date: 20200122
  Serious: Yes (Hospitalization)
  Sender: FDA-Public Use
  Company Number: None

PATIENT
  Age: 59 Year
  Sex: Female

DRUGS (17)
  1. AMBRISENTAN [Suspect]
     Active Substance: AMBRISENTAN
     Indication: PULMONARY ARTERIAL HYPERTENSION
     Route: 048
     Dates: start: 20191108
  2. FOSAMAX [Concomitant]
     Active Substance: ALENDRONATE SODIUM
  3. KETOPROFEN. [Concomitant]
     Active Substance: KETOPROFEN
  4. MYCOPHENOLATE [Concomitant]
     Active Substance: MYCOPHENOLIC ACID
  5. PROAIR HFA [Concomitant]
     Active Substance: ALBUTEROL SULFATE
  6. VALACYCLOVIR [Concomitant]
     Active Substance: VALACYCLOVIR HYDROCHLORIDE
  7. VITAMIN D [Concomitant]
     Active Substance: VITAMIN D NOS
  8. IMURAN [Concomitant]
     Active Substance: AZATHIOPRINE
  9. TRAMADOL. [Concomitant]
     Active Substance: TRAMADOL
  10. CEFDINIR. [Concomitant]
     Active Substance: CEFDINIR
  11. IPRATROPIUM [Concomitant]
     Active Substance: IPRATROPIUM
  12. AZITHROMYCIN ANHYDROUS. [Concomitant]
     Active Substance: AZITHROMYCIN ANHYDROUS
  13. NEXIUM [Concomitant]
     Active Substance: ESOMEPRAZOLE MAGNESIUM
  14. SIMVASTATIN. [Concomitant]
     Active Substance: SIMVASTATIN
  15. VICODIN [Concomitant]
     Active Substance: ACETAMINOPHEN\HYDROCODONE BITARTRATE
  16. BACTRIM [Concomitant]
     Active Substance: SULFAMETHOXAZOLE\TRIMETHOPRIM
  17. FUROSEMIDE. [Concomitant]
     Active Substance: FUROSEMIDE

REACTIONS (2)
  - Dyspnoea [None]
  - Pulmonary oedema [None]

NARRATIVE: CASE EVENT DATE: 20191206
